FAERS Safety Report 9735983 (Version 2)
Quarter: 2014Q1

REPORT INFORMATION
  Report Type: Spontaneous
  Country: JP (occurrence: JP)
  Receive Date: 20131206
  Receipt Date: 20140310
  Transmission Date: 20141002
  Serious: Yes (Hospitalization)
  Sender: FDA-Public Use
  Company Number: JP-MALLINCKRODT-T201305059

PATIENT
  Age: 40 Year
  Sex: Male
  Weight: 66.8 kg

DRUGS (12)
  1. METHADONE [Suspect]
     Indication: CANCER PAIN
     Dosage: 10 MG, (30 MG DAILY DOSE)
     Route: 048
     Dates: start: 20130912, end: 20130918
  2. METHADONE [Suspect]
     Dosage: 15 MG, (45 MG DAILY DOSE)
     Route: 048
     Dates: start: 20130919, end: 20130925
  3. METHADONE [Suspect]
     Dosage: 20 MG, (60 MG DAILY DOSE)
     Route: 048
     Dates: start: 20130926, end: 20131002
  4. METHADONE [Suspect]
     Dosage: 25 MG, (75 MG DAILY DOSE)
     Route: 048
     Dates: start: 20131002, end: 20131003
  5. OXYFAST [Concomitant]
     Dosage: 60 MG, PRN
     Route: 065
     Dates: start: 20130911
  6. PROMAC [Concomitant]
     Dosage: 150 MG, UNK
     Route: 048
     Dates: start: 20130807, end: 20131003
  7. LOXOPROFEN SODIUM [Concomitant]
     Dosage: 180 MG, UNK
     Route: 048
     Dates: start: 20130618, end: 20131003
  8. CALONAL [Concomitant]
     Dosage: 1800 MG, UNK
     Route: 048
     Dates: start: 20130815, end: 20131003
  9. LYRICA [Concomitant]
     Dosage: 375 MG, UNK
     Route: 048
     Dates: start: 20130614, end: 20131003
  10. SOLANAX [Concomitant]
     Dosage: 0.4 MG, UNK
     Route: 048
     Dates: start: 20130919, end: 20131003
  11. MYSLEE [Concomitant]
     Dosage: 5 MG, UNK
     Route: 048
     Dates: start: 20130923, end: 20131003
  12. REFLEX [Concomitant]
     Dosage: 15 MG, UNK
     Route: 048
     Dates: start: 20130924, end: 20131003

REACTIONS (3)
  - Jaundice cholestatic [Unknown]
  - Cholecystitis [Unknown]
  - Intestinal obstruction [Unknown]
